FAERS Safety Report 7078023 (Version 3)
Quarter: 2018Q3

REPORT INFORMATION
  Report Type: Report from Study
  Country: JP (occurrence: JP)
  Receive Date: 20090811
  Receipt Date: 20180831
  Transmission Date: 20181010
  Serious: Yes (Hospitalization)
  Sender: FDA-Public Use
  Company Number: PHHY2009JP32201

PATIENT
  Age: 72 Year
  Sex: Female
  Weight: 49.7 kg

DRUGS (12)
  1. ARICEPT [Concomitant]
     Active Substance: DONEPEZIL HYDROCHLORIDE
     Indication: PRODUCT USED FOR UNKNOWN INDICATION
     Dosage: 5 MG, QD
     Route: 048
     Dates: start: 20060328
  2. TASIGNA [Suspect]
     Active Substance: NILOTINIB
     Dosage: 200 MG, BID
     Route: 048
     Dates: start: 20090710, end: 20090716
  3. ALLEGRA [Concomitant]
     Active Substance: FEXOFENADINE HYDROCHLORIDE
     Indication: PRODUCT USED FOR UNKNOWN INDICATION
     Dosage: 120 MG, QD
     Route: 048
     Dates: start: 20060328
  4. TASIGNA [Suspect]
     Active Substance: NILOTINIB
     Dosage: 200 MG, BID
     Route: 048
     Dates: start: 20090611, end: 20090617
  5. TASIGNA [Suspect]
     Active Substance: NILOTINIB
     Dosage: UNK UNK, BID
     Route: 048
     Dates: start: 20100426, end: 20101101
  6. EPADEL [Concomitant]
     Active Substance: ICOSAPENT
     Indication: PRODUCT USED FOR UNKNOWN INDICATION
     Dosage: UNK
     Route: 065
     Dates: start: 20080804
  7. GEFANIL [Concomitant]
     Indication: PRODUCT USED FOR UNKNOWN INDICATION
     Dosage: 200 MG, QD
     Route: 048
     Dates: start: 20060328
  8. TASIGNA [Suspect]
     Active Substance: NILOTINIB
     Dosage: 200 MG, QD
     Route: 048
     Dates: start: 20090717, end: 20091124
  9. TASIGNA [Suspect]
     Active Substance: NILOTINIB
     Dosage: 200 MG, BID
     Route: 048
     Dates: start: 20101102
  10. TASIGNA [Suspect]
     Active Substance: NILOTINIB
     Indication: CHRONIC MYELOID LEUKAEMIA
     Dosage: 400 MG, BID
     Route: 048
     Dates: start: 20090421, end: 20090610
  11. TASIGNA [Suspect]
     Active Substance: NILOTINIB
     Dosage: 200 MG, QD
     Route: 048
     Dates: start: 20090701, end: 20090709
  12. TASIGNA [Suspect]
     Active Substance: NILOTINIB
     Dosage: 200 MG, BID
     Route: 048
     Dates: start: 20091125, end: 20100425

REACTIONS (12)
  - Blood bilirubin increased [Recovered/Resolved]
  - Platelet count decreased [Recovered/Resolved]
  - Blood lactate dehydrogenase increased [Recovered/Resolved]
  - White blood cell count decreased [Recovered/Resolved]
  - Thrombocytopenia [Recovering/Resolving]
  - Blood alkaline phosphatase increased [Recovering/Resolving]
  - White blood cell count decreased [Recovered/Resolved]
  - Blood bilirubin increased [Recovered/Resolved]
  - Hypercholesterolaemia [Recovering/Resolving]
  - White blood cell count decreased [Recovered/Resolved]
  - Electrocardiogram QT prolonged [Unknown]
  - Weight increased [Unknown]

NARRATIVE: CASE EVENT DATE: 20090427
